FAERS Safety Report 8790659 (Version 2)
Quarter: 2012Q4

REPORT INFORMATION
  Report Type: Spontaneous
  Country: US (occurrence: None)
  Receive Date: 20120906
  Receipt Date: 20120907
  Transmission Date: 20130627
  Serious: Yes (Death)
  Sender: FDA-Public Use
  Company Number: 2012AP002750

PATIENT
  Age: 87 Year
  Sex: Male

DRUGS (9)
  1. OXCARBAZEPINE [Suspect]
  2. SERTRALINE HYDROCHLORIDE TABLETS [Suspect]
     Indication: DRUG USE FOR UNKNOWN INDICATION
     Route: 048
  3. ASPIRIN [Concomitant]
  4. ATENOLOL [Concomitant]
  5. COMBIVENT [Concomitant]
  6. FUROSEMIDE [Concomitant]
  7. GABAPENTIN [Concomitant]
  8. GLIPIZIDE [Concomitant]
  9. LEVOFLOXACIN [Concomitant]

REACTIONS (3)
  - Drug interaction [None]
  - Serotonin syndrome [None]
  - Cellulitis [None]
